FAERS Safety Report 16358363 (Version 1)
Quarter: 2019Q2

REPORT INFORMATION
  Report Type: Spontaneous
  Country: US (occurrence: US)
  Receive Date: 20190418
  Receipt Date: 20190418
  Transmission Date: 20190711
  Serious: No
  Sender: FDA-Public Use
  Company Number: None

PATIENT
  Age: 75 Year
  Sex: Male
  Weight: 102.06 kg

DRUGS (23)
  1. LOSARTAN 50MG TAB [Suspect]
     Active Substance: LOSARTAN
     Indication: BLOOD PRESSURE MEASUREMENT
     Dosage: ?          QUANTITY:1 TAB;?
     Route: 048
  2. FLAXSEED [Concomitant]
     Active Substance: FLAX SEED
  3. MALOX [Concomitant]
  4. VITAMIN C [Concomitant]
     Active Substance: ASCORBIC ACID
  5. APPLE CIDER VINEGAR [Concomitant]
     Active Substance: APPLE CIDER VINEGAR
  6. SINGULAIR [Concomitant]
     Active Substance: MONTELUKAST SODIUM
  7. PROBIOTIC [Concomitant]
     Active Substance: PROBIOTICS NOS
  8. FORMERIC CUR CUMIN [Concomitant]
  9. CRANBERRY. [Concomitant]
     Active Substance: CRANBERRY
  10. LIQUID VITAMIN D3 [Concomitant]
  11. LOSARTAN. [Concomitant]
     Active Substance: LOSARTAN
  12. ALLEGRA [Concomitant]
     Active Substance: FEXOFENADINE HYDROCHLORIDE
  13. SAW PALMETTO [Concomitant]
     Active Substance: HERBALS\SAW PALMETTO
  14. MEMBER MARK FLUTICSONE PROPIONATE NASAL SPRAY [Concomitant]
  15. FIBER WELL FIBER [Concomitant]
  16. JOINT HEALTH [Concomitant]
  17. BROMELAIN [Concomitant]
     Active Substance: BROMELAINS
  18. PROSTATE CONTROL [Concomitant]
  19. PAPAYA ENZYME [Concomitant]
  20. GARLIC. [Concomitant]
     Active Substance: GARLIC
  21. STRESS VIT W IRON [Concomitant]
  22. TART EXTRACT [Concomitant]
  23. COQ10 [Concomitant]
     Active Substance: UBIDECARENONE

REACTIONS (9)
  - Genital burning sensation [None]
  - Hypoaesthesia [None]
  - Genital injury [None]
  - Paraesthesia [None]
  - Rhinitis [None]
  - Hyperhidrosis [None]
  - Dysphonia [None]
  - Genital disorder male [None]
  - Constipation [None]
